FAERS Safety Report 4321875-0 (Version None)
Quarter: 2004Q1

REPORT INFORMATION
  Report Type: 
  Country: None (occurrence: None)
  Receive Date: 20040323
  Receipt Date: 20040317
  Transmission Date: 20041129
  Serious: Yes (Death)
  Sender: FDA-Public Use
  Company Number: 200412051US

PATIENT
  Age: 90 Year
  Sex: Female
  Weight: 97 kg

DRUGS (1)
  1. LOVENOX [Suspect]
     Indication: DEEP VENOUS THROMBOSIS PROPHYLAXIS
     Route: 058
     Dates: start: 20040301, end: 20040301

REACTIONS (3)
  - ABDOMINAL HAEMATOMA [None]
  - MUSCLE HAEMORRHAGE [None]
  - PNEUMONIA [None]
